FAERS Safety Report 6794785-7 (Version None)
Quarter: 2010Q2

REPORT INFORMATION
  Report Type: 
  Country: None (occurrence: None)
  Receive Date: 20100625
  Receipt Date: 20100525
  Transmission Date: 20101027
  Serious: No
  Sender: FDA-Public Use
  Company Number: US-BAYER-201016078BCC

PATIENT
  Age: 42 Year
  Sex: Female
  Weight: 86 kg

DRUGS (2)
  1. ALEVE [Suspect]
     Indication: BACK PAIN
     Dosage: UNIT DOSE: 220 MG
     Route: 048
     Dates: start: 20100524, end: 20100524
  2. ALEVE [Suspect]
     Dosage: TOTAL DAILY DOSE: 220 MG  UNIT DOSE: 220 MG
     Route: 048
     Dates: start: 20100525

REACTIONS (3)
  - DIZZINESS [None]
  - FATIGUE [None]
  - SOMNOLENCE [None]
